FAERS Safety Report 7357484-9 (Version None)
Quarter: 2011Q1

REPORT INFORMATION
  Report Type: 
  Country: None (occurrence: None)
  Receive Date: 20110317
  Receipt Date: 20100928
  Transmission Date: 20110831
  Serious: Yes (Hospitalization, Other)
  Sender: FDA-Public Use
  Company Number: US-BAYER-201017326NA

PATIENT
  Sex: Female
  Weight: 72.562 kg

DRUGS (14)
  1. YASMIN [Suspect]
     Indication: CONTRACEPTION
  2. BETAMETHASONE/CLOTRIMAZOLE/NEOMYCIN [Concomitant]
     Dosage: UNK
     Route: 061
     Dates: start: 20070124
  3. NITROFURANTOIN [Concomitant]
     Dosage: 100 MG, UNK
     Route: 048
     Dates: start: 20080912
  4. YAZ [Suspect]
     Indication: MENSTRUAL CYCLE MANAGEMENT
  5. DRYSOL [Concomitant]
     Dosage: UNK
     Dates: start: 20070404
  6. YASMIN [Suspect]
     Indication: MENSTRUAL CYCLE MANAGEMENT
     Dosage: UNK
     Route: 048
     Dates: start: 20060501, end: 20090915
  7. OCELLA [Suspect]
     Indication: MENSTRUAL CYCLE MANAGEMENT
  8. ACLOVATE [Concomitant]
     Dosage: UNK
     Route: 061
     Dates: start: 20070416
  9. INDOMETHACIN [Concomitant]
     Dosage: 25 MG, UNK
     Route: 048
     Dates: start: 20081203
  10. YAZ [Suspect]
     Indication: CONTRACEPTION
     Dosage: UNK
     Route: 048
     Dates: start: 20060501, end: 20090915
  11. DIAZEPAM [Concomitant]
     Dosage: 5 MG, UNK
     Route: 048
     Dates: start: 20081106
  12. CIPROFLOXACIN [Concomitant]
     Dosage: 500 MG, UNK
     Route: 048
     Dates: start: 20081124
  13. OCELLA [Suspect]
     Indication: CONTRACEPTION
  14. PHENAZOPYRIDINE HCL TAB [Concomitant]
     Dosage: 200 MG, UNK
     Route: 048
     Dates: start: 20080912

REACTIONS (9)
  - PROCEDURAL PAIN [None]
  - VOMITING [None]
  - GALLBLADDER DISORDER [None]
  - GASTROOESOPHAGEAL REFLUX DISEASE [None]
  - CHOLECYSTITIS [None]
  - CHOLELITHIASIS [None]
  - CHEST PAIN [None]
  - QUALITY OF LIFE DECREASED [None]
  - NAUSEA [None]
